FAERS Safety Report 18700246 (Version 1)
Quarter: 2021Q1

REPORT INFORMATION
  Report Type: Spontaneous
  Country: US (occurrence: US)
  Receive Date: 20210104
  Receipt Date: 20210104
  Transmission Date: 20210419
  Serious: Yes (Life-Threatening)
  Sender: FDA-Public Use
  Company Number: None

PATIENT
  Age: 82 Year
  Sex: Male
  Weight: 87.1 kg

DRUGS (1)
  1. REMDESIVIR. [Suspect]
     Active Substance: REMDESIVIR
     Indication: COVID-19
     Route: 042
     Dates: start: 20201229, end: 20210102

REACTIONS (4)
  - Hepatic failure [None]
  - Acute respiratory failure [None]
  - Blood pressure decreased [None]
  - Renal failure [None]

NARRATIVE: CASE EVENT DATE: 20210104
